FAERS Safety Report 6269037-4 (Version None)
Quarter: 2009Q3

REPORT INFORMATION
  Report Type: 
  Country: None (occurrence: None)
  Receive Date: 20090715
  Receipt Date: 20090707
  Transmission Date: 20100115
  Serious: Yes (Hospitalization)
  Sender: FDA-Public Use
  Company Number: B0581964A

PATIENT
  Sex: Male

DRUGS (15)
  1. EPIVIR [Suspect]
     Indication: HIV INFECTION
     Dosage: 150MG TWICE PER DAY
     Route: 048
     Dates: start: 19970417, end: 19970514
  2. EPIVIR [Suspect]
     Dosage: 150MG TWICE PER DAY
     Route: 048
     Dates: start: 19971002, end: 19991031
  3. EPIVIR [Suspect]
     Route: 048
     Dates: start: 19991101, end: 20030331
  4. EPIVIR [Suspect]
     Dosage: 150MG TWICE PER DAY
     Route: 048
     Dates: start: 20030401, end: 20031203
  5. EPIVIR [Suspect]
     Dosage: 300MG PER DAY
     Route: 048
     Dates: start: 20040420, end: 20080604
  6. EPIVIR [Suspect]
     Dosage: 300MG PER DAY
     Route: 048
     Dates: start: 20080613
  7. ZIAGEN [Suspect]
     Indication: HIV INFECTION
     Dosage: 600MG PER DAY
     Route: 048
     Dates: start: 20040420, end: 20080604
  8. ZIAGEN [Suspect]
     Dosage: 600MG PER DAY
     Route: 048
     Dates: start: 20080613
  9. NORVIR [Suspect]
     Indication: HIV INFECTION
     Route: 048
     Dates: start: 19991120, end: 20031202
  10. NORVIR [Suspect]
     Route: 048
     Dates: start: 20040615, end: 20080604
  11. NORVIR [Suspect]
     Route: 048
     Dates: start: 20080613
  12. REYATAZ [Suspect]
     Indication: HIV INFECTION
     Route: 048
     Dates: start: 20040420, end: 20040614
  13. REYATAZ [Suspect]
     Route: 048
     Dates: start: 20040615, end: 20080604
  14. LEXIVA [Suspect]
     Indication: HIV INFECTION
     Dosage: 1400MG PER DAY
     Route: 048
     Dates: start: 20080613
  15. RISPERDAL [Concomitant]
     Indication: SCHIZOPHRENIA
     Dosage: 1MG PER DAY
     Route: 048

REACTIONS (4)
  - BACK PAIN [None]
  - BLOOD URIC ACID INCREASED [None]
  - CALCULUS URINARY [None]
  - RENAL FAILURE ACUTE [None]
